FAERS Safety Report 10281949 (Version 1)
Quarter: 2014Q3

REPORT INFORMATION
  Report Type: Spontaneous
  Country: FR (occurrence: FR)
  Receive Date: 20140707
  Receipt Date: 20140707
  Transmission Date: 20150326
  Serious: Yes (Other)
  Sender: FDA-Public Use
  Company Number: FR-TEVA-492223ISR

PATIENT
  Age: 41 Year
  Sex: Female

DRUGS (1)
  1. LEELOO 0.1MG/0.02MG [Suspect]
     Active Substance: ETHINYL ESTRADIOL\LEVONORGESTREL
     Dosage: STARTED 9 MONTHS AGO

REACTIONS (1)
  - Optic atrophy [Not Recovered/Not Resolved]

NARRATIVE: CASE EVENT DATE: 201406
